FAERS Safety Report 23231506 (Version 1)
Quarter: 2023Q4

REPORT INFORMATION
  Report Type: Report from Study
  Country: US (occurrence: US)
  Receive Date: 20231127
  Receipt Date: 20231127
  Transmission Date: 20240110
  Serious: Yes (Hospitalization)
  Sender: FDA-Public Use
  Company Number: US-Eisai-EC-2023-153694

PATIENT
  Age: 60 Year
  Sex: Male

DRUGS (4)
  1. LENVIMA [Suspect]
     Active Substance: LENVATINIB
     Indication: Renal cancer
     Route: 048
     Dates: start: 20230914
  2. LENVIMA [Suspect]
     Active Substance: LENVATINIB
     Indication: Renal cancer
     Route: 048
     Dates: start: 202310
  3. LISINOPRIL [Concomitant]
     Active Substance: LISINOPRIL
     Dosage: DOSE AND FREQUENCY UNKNOWN
  4. EVEROLIMUS [Concomitant]
     Active Substance: EVEROLIMUS
     Dosage: DOSE AND FREQUENCY UNKNOWN

REACTIONS (2)
  - Dehydration [Recovered/Resolved]
  - Blood potassium decreased [Recovered/Resolved]

NARRATIVE: CASE EVENT DATE: 20231001
